FAERS Safety Report 23110835 (Version 1)
Quarter: 2023Q4

REPORT INFORMATION
  Report Type: Report from Study
  Country: KR (occurrence: KR)
  Receive Date: 20231026
  Receipt Date: 20231026
  Transmission Date: 20240109
  Serious: Yes (Death, Hospitalization, Other)
  Sender: FDA-Public Use
  Company Number: KR-JAZZ-2018-KR-005071

PATIENT
  Age: 14 Year
  Sex: Female
  Weight: 55.5 kg

DRUGS (5)
  1. DEFITELIO [Suspect]
     Active Substance: DEFIBROTIDE SODIUM
     Indication: Venoocclusive disease
     Dosage: 340 MG, QID
     Route: 042
     Dates: start: 20171122, end: 20171208
  2. DEFITELIO [Suspect]
     Active Substance: DEFIBROTIDE SODIUM
     Dosage: UNK
     Dates: start: 20180318, end: 20180602
  3. MYCOPHENOLIC ACID [Concomitant]
     Active Substance: MYCOPHENOLIC ACID
     Indication: Graft versus host disease
     Dosage: UNK, BID
     Route: 048
     Dates: start: 20171030, end: 20180318
  4. LANSOPRAZOLE [Concomitant]
     Active Substance: LANSOPRAZOLE
     Indication: Gastritis
     Dosage: 30 MG, QD
     Route: 048
     Dates: start: 20180306
  5. FULLGRAM [Concomitant]
     Indication: Sinusitis
     Dosage: 400 MG, TID
     Route: 042
     Dates: start: 20180313

REACTIONS (4)
  - Disease progression [Fatal]
  - Acute graft versus host disease [Not Recovered/Not Resolved]
  - Venoocclusive disease [Recovered/Resolved]
  - Viral haemorrhagic cystitis [Recovered/Resolved]

NARRATIVE: CASE EVENT DATE: 20171125
